FAERS Safety Report 13249438 (Version 1)
Quarter: 2017Q1

REPORT INFORMATION
  Report Type: Spontaneous
  Country: US (occurrence: US)
  Receive Date: 20170218
  Receipt Date: 20170218
  Transmission Date: 20170428
  Serious: No
  Sender: FDA-Public Use
  Company Number: US-ALLERGAN-1680288US

PATIENT
  Age: 67 Year
  Sex: Female

DRUGS (3)
  1. PROLIA [Concomitant]
     Active Substance: DENOSUMAB
     Indication: OSTEOPOROSIS
     Dosage: TWICE YEARLY
  2. RESTASIS [Suspect]
     Active Substance: CYCLOSPORINE
     Dosage: 5 GTT, QD
     Route: 047
     Dates: start: 20161209, end: 20161210
  3. RESTASIS [Suspect]
     Active Substance: CYCLOSPORINE
     Indication: DRY EYE
     Dosage: 2 GTT, BID
     Route: 047
     Dates: start: 20161208, end: 20161210

REACTIONS (4)
  - Eye pain [Recovering/Resolving]
  - Inappropriate schedule of drug administration [Unknown]
  - Ocular hyperaemia [Recovering/Resolving]
  - Eye swelling [Recovering/Resolving]

NARRATIVE: CASE EVENT DATE: 20161209
